FAERS Safety Report 9747706 (Version 1)
Quarter: 2013Q4

REPORT INFORMATION
  Report Type: Spontaneous
  Country: None (occurrence: None)
  Receive Date: 20131211
  Receipt Date: 20131211
  Transmission Date: 20140711
  Serious: No
  Sender: FDA-Public Use
  Company Number: None

PATIENT
  Age: 28 Year
  Sex: Female
  Weight: 45.36 kg

DRUGS (2)
  1. MIRVASO 0.33% GALDERMA [Suspect]
     Indication: ROSACEA
     Dosage: APPLY TO AFFECTED AREA AS DIRE, AS NEEDED, APPLIED TO A SURFACE USUALLY THE SKIN
     Dates: start: 20131206, end: 20131209
  2. MIRVASO 0.33% GALDERMA [Suspect]
     Indication: FLUSHING
     Dosage: APPLY TO AFFECTED AREA AS DIRE, AS NEEDED, APPLIED TO A SURFACE USUALLY THE SKIN
     Dates: start: 20131206, end: 20131209

REACTIONS (3)
  - Rebound effect [None]
  - Flushing [None]
  - Condition aggravated [None]
